FAERS Safety Report 8517375-4 (Version None)
Quarter: 2012Q3

REPORT INFORMATION
  Report Type: 
  Country: None (occurrence: None)
  Receive Date: 20120718
  Receipt Date: 20120710
  Transmission Date: 20120928
  Serious: Yes (Other)
  Sender: FDA-Public Use
  Company Number: US-US-EMD SERONO, INC.-7124026

PATIENT
  Sex: Female
  Weight: 54 kg

DRUGS (3)
  1. REBIF [Suspect]
     Indication: PRODUCT USED FOR UNKNOWN INDICATION
     Route: 058
     Dates: start: 20090923, end: 20091201
  2. REBIF [Suspect]
     Route: 058
     Dates: start: 20120709
  3. IBUPROFEN [Concomitant]
     Indication: PRODUCT USED FOR UNKNOWN INDICATION

REACTIONS (4)
  - PERONEAL NERVE PALSY [None]
  - BREAST CANCER [None]
  - MUSCLE SPASMS [None]
  - BREAST CANCER FEMALE [None]
